FAERS Safety Report 7310105-3 (Version None)
Quarter: 2011Q1

REPORT INFORMATION
  Report Type: 
  Country: None (occurrence: None)
  Receive Date: 20110224
  Receipt Date: 20110215
  Transmission Date: 20110831
  Serious: No
  Sender: FDA-Public Use
  Company Number: US-PFIZER INC-2010170427

PATIENT
  Age: 79 Year
  Sex: Female
  Weight: 63 kg

DRUGS (8)
  1. ADVIL LIQUI-GELS [Suspect]
     Indication: BACK PAIN
  2. AVAPRO [Concomitant]
  3. METFORMIN [Concomitant]
  4. WARFARIN SODIUM [Concomitant]
  5. SOTALOL [Concomitant]
  6. VICODIN [Concomitant]
  7. ADVIL LIQUI-GELS [Suspect]
     Indication: ARTHRITIS
     Dosage: 2 TABLETS 1-2 X DAILY
     Route: 048
     Dates: start: 20100101, end: 20100101
  8. AMLODIPINE [Concomitant]

REACTIONS (1)
  - EPISTAXIS [None]
